FAERS Safety Report 7510671-9 (Version None)
Quarter: 2011Q2

REPORT INFORMATION
  Report Type: 
  Country: None (occurrence: None)
  Receive Date: 20110530
  Receipt Date: 20110517
  Transmission Date: 20111010
  Serious: Yes (Other)
  Sender: FDA-Public Use
  Company Number: PHFR2011GB03090

PATIENT
  Sex: Female

DRUGS (2)
  1. ZOLEDRONIC ACID [Suspect]
     Dosage: UNK DF, UNK
  2. CAPECITABINE [Suspect]
     Dosage: UNK DF, UNK

REACTIONS (1)
  - BLISTER [None]
